FAERS Safety Report 4387387-3 (Version None)
Quarter: 2004Q2

REPORT INFORMATION
  Report Type: 
  Country: None (occurrence: None)
  Receive Date: 20040630
  Receipt Date: 20040420
  Transmission Date: 20050107
  Serious: No
  Sender: FDA-Public Use
  Company Number: US-GLAXOSMITHKLINE-A0507660A

PATIENT
  Age: 79 Year
  Sex: Female

DRUGS (9)
  1. ADVAIR HFA [Suspect]
     Indication: ILL-DEFINED DISORDER
     Route: 055
     Dates: start: 20030301, end: 20040315
  2. NIFEDIPINE [Concomitant]
  3. TENORMIN [Concomitant]
  4. ZETIA [Concomitant]
  5. TRIAMTERENE [Concomitant]
  6. MULTI-VITAMIN [Concomitant]
  7. ASPIRIN [Concomitant]
  8. VITAMIN E [Concomitant]
  9. ZYRTEC [Concomitant]

REACTIONS (1)
  - MUSCULAR WEAKNESS [None]
